FAERS Safety Report 21992831 (Version 1)
Quarter: 2023Q1

REPORT INFORMATION
  Report Type: Report from Study
  Country: US (occurrence: US)
  Receive Date: 20230215
  Receipt Date: 20230215
  Transmission Date: 20230417
  Serious: Yes (Other)
  Sender: FDA-Public Use
  Company Number: US-ABBVIE-4307228

PATIENT
  Age: 74 Year
  Sex: Female

DRUGS (1)
  1. HUMIRA [Suspect]
     Active Substance: ADALIMUMAB
     Indication: Crohn^s disease
     Dosage: CITRATE FREE
     Route: 058
     Dates: start: 20150508

REACTIONS (6)
  - Haemorrhage [Unknown]
  - Dermatitis allergic [Unknown]
  - Arthritis [Unknown]
  - Blood test abnormal [Unknown]
  - Unevaluable event [Unknown]
  - Anaemia [Unknown]

NARRATIVE: CASE EVENT DATE: 20221001
